FAERS Safety Report 6984617-6 (Version None)
Quarter: 2010Q3

REPORT INFORMATION
  Report Type: 
  Country: None (occurrence: None)
  Receive Date: 20100915
  Receipt Date: 20100907
  Transmission Date: 20110219
  Serious: Yes (Hospitalization)
  Sender: FDA-Public Use
  Company Number: FR-PFIZER INC-2010112598

PATIENT
  Age: 75 Year
  Sex: Male

DRUGS (8)
  1. TAHOR [Suspect]
     Indication: PROPHYLAXIS
     Dosage: 40 MG, 1X/DAY
     Route: 048
  2. PREVISCAN [Interacting]
     Indication: AORTIC VALVE REPLACEMENT
     Dosage: 0.5 DF/0.25 DF IN ALTERNATE DAY
     Route: 048
  3. ALDACTONE [Concomitant]
     Indication: CARDIAC FAILURE
     Dosage: 25 MG, 1X/DAY
     Route: 048
     Dates: end: 20100317
  4. TRIATEC [Concomitant]
     Indication: HYPERTENSION
     Dosage: 1.25 MG, 1X/DAY
     Route: 048
     Dates: end: 20100317
  5. TARDYFERON [Concomitant]
     Indication: IRON DEFICIENCY
     Dosage: 80 MG, 3X/DAY
     Route: 048
  6. LASIX [Concomitant]
     Indication: HYPERTENSION
     Dosage: 250 MG, 1X/DAY
     Route: 048
  7. HEMIGOXINE NATIVELLE [Concomitant]
     Indication: CARDIAC FAILURE
     Dosage: 1 DF, 1X/DAY
     Route: 048
  8. ATARAX [Concomitant]
     Indication: ANXIETY
     Dosage: 25 MG, 1X/DAY
     Route: 048

REACTIONS (2)
  - DRUG INTERACTION [None]
  - HAEMATURIA [None]
